FAERS Safety Report 17228105 (Version 1)
Quarter: 2019Q4

REPORT INFORMATION
  Report Type: Spontaneous
  Country: US (occurrence: US)
  Receive Date: 20191210
  Receipt Date: 20191210
  Transmission Date: 20200122
  Serious: No
  Sender: FDA-Public Use
  Company Number: None

PATIENT
  Age: 80 Year
  Sex: Male

DRUGS (1)
  1. CAPECITABINE TAB 150MG [Suspect]
     Active Substance: CAPECITABINE
     Dosage: ?          OTHER DOSE:3 TABLETS;?
     Route: 048
     Dates: start: 201911

REACTIONS (4)
  - Product distribution issue [None]
  - Inappropriate schedule of product administration [None]
  - Nausea [None]
  - Visual impairment [None]

NARRATIVE: CASE EVENT DATE: 20191210
